FAERS Safety Report 5233591-1 (Version None)
Quarter: 2007Q1

REPORT INFORMATION
  Report Type: 
  Country: None (occurrence: None)
  Receive Date: 20070208
  Receipt Date: 20070131
  Transmission Date: 20070707
  Serious: Yes (Hospitalization)
  Sender: FDA-Public Use
  Company Number: US-AMGEN-US209204

PATIENT
  Sex: Female

DRUGS (6)
  1. ARANESP [Suspect]
     Indication: RENAL FAILURE CHRONIC
     Route: 065
     Dates: start: 20060901
  2. LASIX [Concomitant]
  3. ASPIRIN [Concomitant]
  4. ACTOS [Concomitant]
  5. GLIPIZIDE [Concomitant]
  6. PREVACID [Concomitant]

REACTIONS (2)
  - RASH ERYTHEMATOUS [None]
  - REFLUX OESOPHAGITIS [None]
